FAERS Safety Report 8552432-8 (Version None)
Quarter: 2012Q3

REPORT INFORMATION
  Report Type: 
  Country: None (occurrence: None)
  Receive Date: 20120731
  Receipt Date: 20120706
  Transmission Date: 20120928
  Serious: No
  Sender: FDA-Public Use
  Company Number: US-JNJFOC-20120705136

PATIENT
  Sex: Female

DRUGS (10)
  1. PROMETHAZINE [Concomitant]
     Route: 048
  2. AMITRIPTYLINE HYDROCHLORIDE [Concomitant]
     Route: 048
  3. LITHIUM CARBONATE [Concomitant]
     Indication: SCHIZOPHRENIA
     Route: 048
  4. INVEGA SUSTENNA [Suspect]
     Indication: SCHIZOPHRENIA
     Route: 030
     Dates: start: 20120630
  5. XANAX [Concomitant]
     Route: 048
  6. BENZTROPINE MESYLATE [Concomitant]
     Route: 048
  7. POTASSIUM CHLORIDE [Concomitant]
     Route: 048
  8. PRILOSEC [Concomitant]
     Route: 048
  9. CELEXA [Concomitant]
     Route: 048
  10. COUMADIN [Concomitant]
     Route: 048

REACTIONS (2)
  - DRUG DOSE OMISSION [None]
  - DEVICE LEAKAGE [None]
